FAERS Safety Report 24639492 (Version 2)
Quarter: 2024Q4

REPORT INFORMATION
  Report Type: Spontaneous
  Country: US (occurrence: US)
  Receive Date: 20241119
  Receipt Date: 20241217
  Transmission Date: 20250115
  Serious: No
  Sender: MERCK
  Company Number: US-009507513-2410USA009592

PATIENT
  Sex: Male
  Weight: 90.7 kg

DRUGS (26)
  1. WINREVAIR [Suspect]
     Active Substance: SOTATERCEPT-CSRK
     Indication: Product used for unknown indication
     Dosage: 1.4 ML INSTEAD OF 1.3 ML
     Dates: start: 2024
  2. REMODULIN [Suspect]
     Active Substance: TREPROSTINIL
     Indication: Pulmonary arterial hypertension
     Dosage: 0.100 MICROGRAM PER KILOGRAM
     Route: 058
     Dates: start: 20100714, end: 202411
  3. GEMFIBROZIL [Concomitant]
     Active Substance: GEMFIBROZIL
  4. OMEPRAZOLE [Concomitant]
     Active Substance: OMEPRAZOLE
  5. ATORVASTATIN CALCIUM [Concomitant]
     Active Substance: ATORVASTATIN CALCIUM
  6. ACETAMINOPHEN\HYDROCODONE [Concomitant]
     Active Substance: ACETAMINOPHEN\HYDROCODONE
  7. PERDIEM [PLANTAGO AFRA;SENNA SPP.] [Concomitant]
  8. FOLIC ACID [Concomitant]
     Active Substance: FOLIC ACID
  9. LASIX [Concomitant]
     Active Substance: FUROSEMIDE
  10. PFIZER-BIONTECH COVID-19 VACCINE [Concomitant]
     Active Substance: TOZINAMERAN
  11. VITAMIN D3 [Concomitant]
     Active Substance: CHOLECALCIFEROL
  12. ELIQUIS [Concomitant]
     Active Substance: APIXABAN
  13. LACTOBACILLUS ACIDOPHILUS [Concomitant]
     Active Substance: LACTOBACILLUS ACIDOPHILUS
  14. FLONASE ALLERGY RELIEF [Concomitant]
     Active Substance: FLUTICASONE PROPIONATE
  15. DOCONEXENT\ICOSAPENT [Concomitant]
     Active Substance: DOCONEXENT\ICOSAPENT
  16. LETAIRIS [Concomitant]
     Active Substance: AMBRISENTAN
  17. GABAPENTIN [Concomitant]
     Active Substance: GABAPENTIN
  18. VITAMINS [Concomitant]
     Active Substance: VITAMINS
  19. POTASSIUM CHLORIDE [Concomitant]
     Active Substance: POTASSIUM CHLORIDE
  20. OXYGEN [Concomitant]
     Active Substance: OXYGEN
  21. ADCIRCA [Concomitant]
     Active Substance: TADALAFIL
  22. MAXALT [Concomitant]
     Active Substance: RIZATRIPTAN BENZOATE
  23. MORPHINE SULFATE [Concomitant]
     Active Substance: MORPHINE SULFATE
  24. OXYCODONE HYDROCHLORIDE [Concomitant]
     Active Substance: OXYCODONE HYDROCHLORIDE
  25. DIGOXIN [Concomitant]
     Active Substance: DIGOXIN
  26. FERROUS SULFATE [Concomitant]
     Active Substance: FERROUS SULFATE

REACTIONS (6)
  - Platelet count decreased [Unknown]
  - Abdominal discomfort [Unknown]
  - Retching [Unknown]
  - Vomiting [Unknown]
  - Full blood count decreased [Unknown]
  - Incorrect dose administered [Unknown]

NARRATIVE: CASE EVENT DATE: 20240101
